FAERS Safety Report 16734665 (Version 1)
Quarter: 2019Q3

REPORT INFORMATION
  Report Type: Spontaneous
  Country: US (occurrence: US)
  Receive Date: 20190823
  Receipt Date: 20190823
  Transmission Date: 20191005
  Serious: No
  Sender: FDA-Public Use
  Company Number: US-MYLANLABS-2019M1071847

PATIENT

DRUGS (2)
  1. GLATIRAMER [Suspect]
     Active Substance: GLATIRAMER
     Indication: PRODUCT USED FOR UNKNOWN INDICATION
     Dosage: UNK
     Dates: start: 20190624
  2. GLATIRAMER [Suspect]
     Active Substance: GLATIRAMER
     Dosage: UNK
     Dates: start: 20190625

REACTIONS (2)
  - Incorrect dose administered by device [Unknown]
  - Product dose omission [Unknown]

NARRATIVE: CASE EVENT DATE: 20190624
